FAERS Safety Report 23055487 (Version 2)
Quarter: 2023Q4

REPORT INFORMATION
  Report Type: Report from Study
  Country: FR (occurrence: FR)
  Receive Date: 20231011
  Receipt Date: 20231018
  Transmission Date: 20240110
  Serious: Yes (Death)
  Sender: FDA-Public Use
  Company Number: FR-JNJFOC-20221230147

PATIENT
  Age: 67 Year
  Sex: Female
  Weight: 58 kg

DRUGS (3)
  1. TECLISTAMAB [Suspect]
     Active Substance: TECLISTAMAB
     Indication: Plasma cell myeloma
     Dosage: D1, D3 AND D5 ON 24, 26 AND 28-OCT-2022
     Route: 058
     Dates: start: 20221024, end: 20221028
  2. TECLISTAMAB [Suspect]
     Active Substance: TECLISTAMAB
     Route: 058
     Dates: end: 20221205
  3. CLARITHROMYCIN [Suspect]
     Active Substance: CLARITHROMYCIN
     Indication: Bronchitis
     Route: 048
     Dates: start: 20221201, end: 20221207

REACTIONS (3)
  - Agranulocytosis [Fatal]
  - Lung disorder [Fatal]
  - Septic shock [Fatal]

NARRATIVE: CASE EVENT DATE: 20221207
